FAERS Safety Report 19377491 (Version 1)
Quarter: 2021Q2

REPORT INFORMATION
  Report Type: Spontaneous
  Country: CZ (occurrence: CZ)
  Receive Date: 20210605
  Receipt Date: 20210605
  Transmission Date: 20210717
  Serious: Yes (Hospitalization, Other)
  Sender: FDA-Public Use
  Company Number: CZ-AUROBINDO-AUR-APL-2021-017408

PATIENT
  Age: 47 Year
  Sex: Female
  Weight: 58 kg

DRUGS (14)
  1. DICLOFENAC [Suspect]
     Active Substance: DICLOFENAC
     Indication: CHEST PAIN
     Dosage: 50 MILLIGRAM 0.33 DAY
     Route: 048
  2. REBIF [Interacting]
     Active Substance: INTERFERON BETA-1A
     Indication: RELAPSING-REMITTING MULTIPLE SCLEROSIS
     Dosage: UNK (STARTED ON AN UNKNOWN DATE AND DISCONTINUED ON AN UNKNOWN DATE)
     Route: 058
  3. REBIF [Interacting]
     Active Substance: INTERFERON BETA-1A
     Dosage: UNK
     Route: 058
     Dates: start: 2009, end: 2017
  4. MAGNOSOLV [Concomitant]
     Active Substance: MAGNESIUM CARBONATE\MAGNESIUM OXIDE
     Indication: MUSCLE SPASMS
     Dosage: 365 MILLIGRAM, ONCE A DAY
     Route: 048
     Dates: start: 2007
  5. ITAKEM [Concomitant]
     Indication: DEPRESSION
     Dosage: 5 MILLIGRAM, ONCE A DAY
     Route: 048
     Dates: start: 2018
  6. MEDROL [Concomitant]
     Active Substance: METHYLPREDNISOLONE
     Indication: MULTIPLE SCLEROSIS
     Dosage: UNK UNK, ONCE A DAY (16 (UNSPECIFIED UNITS))
     Route: 048
  7. CALTRATE WITH VITAMIN D [Concomitant]
     Active Substance: CALCIUM CARBONATE\CHOLECALCIFEROL
     Dosage: 600 MILLIGRAM, ONCE A DAY
     Route: 048
     Dates: start: 2010
  8. ZOLADEX [Concomitant]
     Active Substance: GOSERELIN ACETATE
     Indication: PRODUCT USED FOR UNKNOWN INDICATION
     Dosage: UNK 3.6 (UNSPECIFIED UNITS)
     Route: 065
  9. REBIF [Interacting]
     Active Substance: INTERFERON BETA-1A
     Dosage: 44 MICROGRAM 0.33 WEEK
     Route: 058
     Dates: start: 201802, end: 20210305
  10. CALTRATE WITH VITAMIN D [Concomitant]
     Active Substance: CALCIUM CARBONATE\CHOLECALCIFEROL
     Indication: OSTEOPENIA
     Dosage: UNK (400 (UNSPECIFIED UNITS))
     Route: 048
  11. LETROZOLE. [Concomitant]
     Active Substance: LETROZOLE
     Indication: PRODUCT USED FOR UNKNOWN INDICATION
     Dosage: UNK UNK, ONCE A DAY (2.5 (UNSPECIFIED UNITS))
     Route: 065
  12. MEDROL [Concomitant]
     Active Substance: METHYLPREDNISOLONE
     Dosage: 8 MILLIGRAM, ONCE A DAY
     Route: 048
     Dates: start: 201001
  13. LIDOCAINE. [Concomitant]
     Active Substance: LIDOCAINE
     Indication: PREMEDICATION
     Dosage: UNK (SPRAY)
     Route: 061
  14. APO?GABAPENTIN [Concomitant]
     Active Substance: GABAPENTIN
     Indication: PARAESTHESIA
     Dosage: 100 MILLIGRAM, ONCE A DAY
     Route: 048
     Dates: start: 2017

REACTIONS (36)
  - Liver disorder [Unknown]
  - Ocular hyperaemia [Unknown]
  - Eye irritation [Unknown]
  - Vertigo [Unknown]
  - Lacrimation increased [Unknown]
  - Melaena [Recovered/Resolved]
  - Poor quality sleep [Unknown]
  - Nausea [Unknown]
  - Influenza like illness [Unknown]
  - Gastritis erosive [Recovering/Resolving]
  - Non-cardiac chest pain [Unknown]
  - Tenderness [Unknown]
  - Hypoproteinaemia [Unknown]
  - Anaemia [Recovering/Resolving]
  - Drug interaction [Recovered/Resolved]
  - Photon radiation therapy to breast [Unknown]
  - Hypoalbuminaemia [Recovering/Resolving]
  - Hypertension [Recovering/Resolving]
  - Chronic kidney disease [Unknown]
  - Pleural effusion [Unknown]
  - Lymphopenia [Unknown]
  - Dyspnoea [Recovering/Resolving]
  - Tachycardia [Unknown]
  - Acute kidney injury [Recovering/Resolving]
  - Thrombocytopenia [Recovering/Resolving]
  - Influenza [Unknown]
  - Thrombotic microangiopathy [Recovering/Resolving]
  - Aortic valve incompetence [Unknown]
  - Pyelocaliectasis [Unknown]
  - Mucinous breast carcinoma [Unknown]
  - Breast conserving surgery [Unknown]
  - Pancreatic disorder [Unknown]
  - Herpes zoster [Unknown]
  - Hiatus hernia [Unknown]
  - Dizziness [Unknown]
  - Decreased appetite [Unknown]

NARRATIVE: CASE EVENT DATE: 2012
